FAERS Safety Report 16488280 (Version 1)
Quarter: 2019Q2

REPORT INFORMATION
  Report Type: Spontaneous
  Country: US (occurrence: US)
  Receive Date: 20190517
  Receipt Date: 20190517
  Transmission Date: 20190711
  Serious: Yes (Hospitalization)
  Sender: FDA-Public Use
  Company Number: None

PATIENT
  Age: 68 Year
  Sex: Female
  Weight: 97.5 kg

DRUGS (3)
  1. DEXAMETHASONE. [Suspect]
     Active Substance: DEXAMETHASONE
     Dates: end: 20190416
  2. VELCADE [Suspect]
     Active Substance: BORTEZOMIB
     Dates: end: 20190515
  3. LENALIDOMIDE (CC-5013) [Suspect]
     Active Substance: LENALIDOMIDE
     Dates: end: 20190419

REACTIONS (5)
  - Dyspnoea [None]
  - Lung infiltration [None]
  - Cough [None]
  - Pancytopenia [None]
  - Wheezing [None]

NARRATIVE: CASE EVENT DATE: 20190419
